FAERS Safety Report 5258119-1 (Version None)
Quarter: 2007Q1

REPORT INFORMATION
  Report Type: 
  Country: None (occurrence: None)
  Receive Date: 20070307
  Receipt Date: 20070223
  Transmission Date: 20070707
  Serious: Yes (Hospitalization)
  Sender: FDA-Public Use
  Company Number: US-PFIZER INC-2007014186

PATIENT
  Sex: Female
  Weight: 60.9 kg

DRUGS (11)
  1. SUTENT [Suspect]
     Indication: METASTATIC RENAL CELL CARCINOMA
     Route: 048
     Dates: start: 20061009, end: 20070221
  2. INTERFERON ALFA-2B [Suspect]
     Indication: METASTATIC RENAL CELL CARCINOMA
     Dosage: TEXT:UNIT DOSE AND TOTAL DAILY DOSE: 3 MU-FREQ:FREQ: QHS , INTER: Q M-W-F
     Route: 058
     Dates: start: 20061009, end: 20070221
  3. FERROUS SULFATE [Concomitant]
     Indication: VITAMIN SUPPLEMENTATION
     Route: 048
     Dates: start: 20010501
  4. ACETYLSALICYLIC ACID SRT [Concomitant]
     Indication: CARDIAC DISORDER
     Route: 048
     Dates: start: 19670101
  5. STOOL SOFTENER [Concomitant]
     Route: 048
     Dates: start: 20060721
  6. COMPAZINE [Concomitant]
     Indication: NAUSEA
     Route: 048
     Dates: start: 20061028
  7. OMEGA 3 [Concomitant]
     Indication: VITAMIN SUPPLEMENTATION
     Route: 048
  8. CALTRATE + D [Concomitant]
     Indication: VITAMIN SUPPLEMENTATION
  9. COENZYME Q10 [Concomitant]
     Indication: VITAMIN SUPPLEMENTATION
  10. VITAMIN CAP [Concomitant]
     Indication: VITAMIN SUPPLEMENTATION
     Route: 048
     Dates: start: 19670101
  11. VITAMIN E [Concomitant]
     Indication: VITAMIN SUPPLEMENTATION
     Route: 048
     Dates: start: 19670101

REACTIONS (7)
  - HAEMOGLOBIN [None]
  - HYPOCALCAEMIA [None]
  - HYPOGLYCAEMIA [None]
  - HYPOKALAEMIA [None]
  - SYNCOPE [None]
  - THROMBOCYTOPENIA [None]
  - VOMITING [None]
